FAERS Safety Report 12613323 (Version 1)
Quarter: 2016Q3

REPORT INFORMATION
  Report Type: Spontaneous
  Country: SE (occurrence: SE)
  Receive Date: 20160802
  Receipt Date: 20160802
  Transmission Date: 20161109
  Serious: Yes (Life-Threatening, Disabling)
  Sender: FDA-Public Use
  Company Number: SE-ASTRAZENECA-2016SE80574

PATIENT
  Age: 44 Year
  Sex: Male

DRUGS (3)
  1. NEOSTIGMIN [Concomitant]
     Active Substance: NEOSTIGMINE
  2. INNOHEP [Concomitant]
     Active Substance: TINZAPARIN SODIUM
  3. MOVENTIG [Suspect]
     Active Substance: NALOXEGOL OXALATE
     Indication: CONSTIPATION
     Route: 048
     Dates: start: 20160626, end: 20160629

REACTIONS (1)
  - Gastrointestinal hypomotility [Recovered/Resolved with Sequelae]

NARRATIVE: CASE EVENT DATE: 20160629
